FAERS Safety Report 7903152-1 (Version None)
Quarter: 2011Q4

REPORT INFORMATION
  Report Type: 
  Country: None (occurrence: None)
  Receive Date: 20111109
  Receipt Date: 20111104
  Transmission Date: 20120403
  Serious: Yes (Hospitalization, Other)
  Sender: FDA-Public Use
  Company Number: GB-BAYER-2011-038542

PATIENT
  Age: 76 Year
  Sex: Male

DRUGS (40)
  1. SORAFENIB (RAF KINASE INHIBITOR) [Suspect]
     Dosage: 400 MG, BID
     Route: 048
     Dates: start: 20100327, end: 20100330
  2. SORAFENIB (RAF KINASE INHIBITOR) [Suspect]
     Dosage: 400 MG, QD
     Route: 048
     Dates: start: 20101021, end: 20101201
  3. SORAFENIB (RAF KINASE INHIBITOR) [Suspect]
     Dosage: 400 MG, QD
     Route: 048
     Dates: start: 20110224, end: 20110406
  4. PLACEBO (12917) [Suspect]
     Dosage: 100 MG, QD
     Route: 048
     Dates: start: 20110224, end: 20110406
  5. SORAFENIB (RAF KINASE INHIBITOR) [Suspect]
     Dosage: 400 MG, QD
     Route: 048
     Dates: start: 20100708, end: 20100721
  6. PLACEBO (12917) [Suspect]
     Dosage: 100 MG, QD
     Route: 048
     Dates: start: 20100603, end: 20100623
  7. PLACEBO (12917) [Suspect]
     Dosage: 100 MG, QD
     Route: 048
     Dates: start: 20100708, end: 20100721
  8. PLACEBO (12917) [Suspect]
     Dosage: 100 MG, QD
     Route: 048
     Dates: start: 20100722, end: 20100825
  9. PLACEBO (12917) [Suspect]
     Dosage: 100 MG, QD
     Route: 048
     Dates: start: 20110113, end: 20110223
  10. ASPIRIN [Concomitant]
     Indication: CORONARY ARTERY BYPASS
     Dosage: DAILY DOSE 75 MG
     Route: 048
     Dates: start: 20080201
  11. CHLORHEXIDINE GLUCONATE [Concomitant]
     Indication: MUCOSAL INFLAMMATION
     Dosage: 5 ML, PRN
     Route: 048
     Dates: start: 20100603
  12. PHOSPHATE-SANDOZ [K BICARB,NA BICARB,NA+ PHOS MONOBAS (ANHYDR)] [Concomitant]
     Dosage: 3 TABLETS TOTAL DAILY DOSE
     Route: 048
     Dates: start: 20100528, end: 20100624
  13. SOLPADOL [Concomitant]
     Indication: MUSCULOSKELETAL PAIN
  14. SORAFENIB (RAF KINASE INHIBITOR) [Suspect]
     Dosage: 400 MG, BID
     Route: 048
     Dates: start: 20100422, end: 20100602
  15. PLACEBO (12917) [Suspect]
     Dosage: 100 MG, QD
     Route: 048
     Dates: start: 20101202, end: 20110112
  16. DIFFLAM [Concomitant]
     Indication: MUCOSAL INFLAMMATION
     Dosage: 5 ML, PRN
     Route: 048
     Dates: start: 20100603
  17. AQUEOUS [EMULSIFYING WAX,PARAFFIN, LIQUID,WHITE SOFT PARAFFIN] [Concomitant]
     Indication: DRY SKIN
     Dosage: UNK UNK, PRN
     Route: 061
     Dates: start: 20110203
  18. OMNIPAQUE 140 [Concomitant]
     Indication: SCAN WITH CONTRAST
     Dosage: 100 ML, UNK
     Route: 042
     Dates: start: 20100302
  19. PHOSPHATE-SANDOZ [K BICARB,NA BICARB,NA+ PHOS MONOBAS (ANHYDR)] [Concomitant]
     Indication: HYPOPHOSPHATAEMIA
     Dosage: 3 TABLETS TOTAL DAILY DOSE
     Route: 048
     Dates: start: 20100423, end: 20100430
  20. CLARITHROMYCIN [Concomitant]
     Indication: INFECTION
     Dosage: UNK
     Dates: start: 20100512
  21. SORAFENIB (RAF KINASE INHIBITOR) [Suspect]
     Dosage: 400 MG, QD
     Route: 048
     Dates: start: 20110113, end: 20110223
  22. PLACEBO (12917) [Suspect]
     Dosage: 100 MG, QD
     Route: 048
     Dates: start: 20100422, end: 20100602
  23. LOPERAMIDE HCL [Concomitant]
     Indication: DIARRHOEA
     Dosage: 2 MG, PRN
     Route: 048
     Dates: start: 20100513
  24. COLCHICIN [Concomitant]
     Indication: GOUT
     Dosage: DAILY DOSE 3 MG
     Route: 048
     Dates: start: 20100318, end: 20100319
  25. SORAFENIB (RAF KINASE INHIBITOR) [Suspect]
     Dosage: 400 MG, QD
     Route: 048
     Dates: start: 20110407, end: 20110428
  26. PLACEBO (12917) [Suspect]
     Dosage: 100 MG, QD
     Route: 048
     Dates: start: 20110407, end: 20110428
  27. RAMIPRIL [Concomitant]
     Indication: MYOCARDIAL INFARCTION
     Dosage: UNK
     Route: 048
     Dates: start: 20080201, end: 20110428
  28. AUGMENTIN [Concomitant]
     Indication: INFECTION
     Dosage: UNK
     Dates: start: 20110512
  29. SOLPADOL [Concomitant]
     Indication: DIARRHOEA
     Dosage: UNK
     Dates: start: 20110427
  30. PLACEBO (12917) [Suspect]
     Dosage: 100 MG, QD
     Route: 048
     Dates: start: 20100401, end: 20100421
  31. SORAFENIB (RAF KINASE INHIBITOR) [Suspect]
     Dosage: 400 MG, BID
     Route: 048
     Dates: start: 20100401, end: 20100421
  32. SORAFENIB (RAF KINASE INHIBITOR) [Suspect]
     Dosage: 400 MG, QD
     Route: 048
     Dates: start: 20100722, end: 20100825
  33. SORAFENIB (RAF KINASE INHIBITOR) [Suspect]
     Dosage: 400 MG, QD
     Route: 048
     Dates: start: 20100826, end: 20101006
  34. SORAFENIB (RAF KINASE INHIBITOR) [Suspect]
     Dosage: 400 MG, QD
     Route: 048
     Dates: start: 20101202, end: 20110112
  35. PLACEBO (12917) [Suspect]
     Indication: HEPATIC NEOPLASM MALIGNANT
     Dosage: 150 MG, QD
     Route: 048
     Dates: start: 20100311, end: 20100317
  36. PLACEBO (12917) [Suspect]
     Dosage: 100 MG, QD
     Route: 048
     Dates: start: 20101021, end: 20101201
  37. SORAFENIB (RAF KINASE INHIBITOR) [Suspect]
     Indication: HEPATIC NEOPLASM MALIGNANT
     Dosage: 400 MG, BID
     Route: 048
     Dates: start: 20100311, end: 20100317
  38. SORAFENIB (RAF KINASE INHIBITOR) [Suspect]
     Dosage: 400 MG, BID
     Route: 048
     Dates: start: 20100603, end: 20100623
  39. PLACEBO (12917) [Suspect]
     Dosage: 100 MG, QD
     Route: 048
     Dates: start: 20100327, end: 20100330
  40. PLACEBO (12917) [Suspect]
     Dosage: 100 MG, QD
     Route: 048
     Dates: start: 20100826, end: 20101006

REACTIONS (2)
  - DEHYDRATION [None]
  - PULMONARY CAVITATION [None]
